FAERS Safety Report 18244929 (Version 1)
Quarter: 2020Q3

REPORT INFORMATION
  Report Type: Spontaneous
  Country: US (occurrence: US)
  Receive Date: 20200909
  Receipt Date: 20200909
  Transmission Date: 20201103
  Serious: No
  Sender: FDA-Public Use
  Company Number: US-ELI_LILLY_AND_COMPANY-US202008006743

PATIENT
  Sex: Female

DRUGS (3)
  1. HUMALOG JUNIOR KWIKPEN [Suspect]
     Active Substance: INSULIN LISPRO
     Indication: TYPE 1 DIABETES MELLITUS
     Dosage: 1 U, TID(0.5?1UNITS)
     Route: 058
     Dates: start: 20200518
  2. LANTUS [Suspect]
     Active Substance: INSULIN GLARGINE
     Indication: TYPE 1 DIABETES MELLITUS
     Dosage: UNK UNK, UNKNOWN
     Route: 065
  3. HUMALOG JUNIOR KWIKPEN [Suspect]
     Active Substance: INSULIN LISPRO
     Dosage: 1 U, TID(0.5?1UNITS)
     Route: 058
     Dates: start: 20200518

REACTIONS (4)
  - Incorrect dose administered [Unknown]
  - Blood glucose increased [Recovered/Resolved]
  - Pain [Recovered/Resolved]
  - Product dose omission issue [Recovered/Resolved]
